FAERS Safety Report 7485113-2 (Version None)
Quarter: 2011Q2

REPORT INFORMATION
  Report Type: 
  Country: None (occurrence: None)
  Receive Date: 20110517
  Receipt Date: 20101123
  Transmission Date: 20111010
  Serious: Yes (Hospitalization, Other)
  Sender: FDA-Public Use
  Company Number: US-BAYER-201029384NA

PATIENT
  Age: 39 Year
  Sex: Female
  Weight: 127 kg

DRUGS (2)
  1. LISINOPRIL [Concomitant]
     Dosage: UNK
     Dates: start: 20080701
  2. YASMIN [Suspect]
     Indication: CONTRACEPTION
     Dosage: 1 TAB / DAY
     Dates: start: 20060101, end: 20080701

REACTIONS (2)
  - DEEP VEIN THROMBOSIS [None]
  - PULMONARY EMBOLISM [None]
